FAERS Safety Report 7221006-3 (Version None)
Quarter: 2011Q1

REPORT INFORMATION
  Report Type: 
  Country: None (occurrence: None)
  Receive Date: 20110112
  Receipt Date: 20110110
  Transmission Date: 20110831
  Serious: Yes (Other)
  Sender: FDA-Public Use
  Company Number: US-BRISTOL-MYERS SQUIBB COMPANY-15478266

PATIENT
  Age: 76 Year
  Sex: Female
  Weight: 48 kg

DRUGS (7)
  1. CELEBREX [Interacting]
     Indication: ARTHRALGIA
     Dosage: HARD CAPSULE
     Route: 048
     Dates: start: 20000101, end: 20100901
  2. COREX DX [Concomitant]
  3. ESTRADIOL [Concomitant]
  4. LYRICA [Concomitant]
  5. COUMADIN [Suspect]
     Indication: HEART VALVE REPLACEMENT
  6. AMBIEN [Concomitant]
     Dosage: TAB
     Route: 048
  7. DIOVAN [Concomitant]

REACTIONS (6)
  - CARDIAC DISORDER [None]
  - DRUG INTERACTION [None]
  - ABDOMINAL PAIN UPPER [None]
  - DRUG LEVEL INCREASED [None]
  - HAEMATURIA [None]
  - HAEMORRHAGE [None]
